FAERS Safety Report 15515055 (Version 2)
Quarter: 2020Q4

REPORT INFORMATION
  Report Type: Spontaneous
  Country: CA (occurrence: CA)
  Receive Date: 20181017
  Receipt Date: 20201115
  Transmission Date: 20210113
  Serious: Yes (Disabling)
  Sender: FDA-Public Use
  Company Number: CA-ROCHE-2199765

PATIENT
  Age: 54 Year
  Sex: Female

DRUGS (6)
  1. DIAZEPAM. [Suspect]
     Active Substance: DIAZEPAM
     Indication: INFLAMMATION
     Route: 065
  2. CLOTRIMADERM [Concomitant]
     Active Substance: CLOTRIMAZOLE
  3. BACLOFEN. [Concomitant]
     Active Substance: BACLOFEN
  4. VAGIFEM [Concomitant]
     Active Substance: ESTRADIOL
  5. DIAZEPAM. [Suspect]
     Active Substance: DIAZEPAM
     Indication: MUSCLE SPASMS
     Route: 054
     Dates: start: 20170731
  6. DIAZEPAM. [Suspect]
     Active Substance: DIAZEPAM
     Indication: GENITOURINARY SYMPTOM

REACTIONS (4)
  - Somnolence [Recovered/Resolved]
  - Balance disorder [Recovered/Resolved]
  - Vomiting [Recovered/Resolved]
  - Nausea [Recovered/Resolved]

NARRATIVE: CASE EVENT DATE: 20170801
